FAERS Safety Report 21286660 (Version 3)
Quarter: 2022Q4

REPORT INFORMATION
  Report Type: Spontaneous
  Country: GB (occurrence: GB)
  Receive Date: 20220902
  Receipt Date: 20221103
  Transmission Date: 20230112
  Serious: Yes (Death)
  Sender: FDA-Public Use
  Company Number: GB-MYLANLABS-2020M1048330

PATIENT
  Sex: Male

DRUGS (5)
  1. TOBRAMYCIN [Suspect]
     Active Substance: TOBRAMYCIN
     Indication: Product used for unknown indication
     Dosage: UNK
     Route: 065
  2. COLISTIMETHATE SODIUM [Suspect]
     Active Substance: COLISTIMETHATE SODIUM
     Indication: Product used for unknown indication
     Dosage: UNK
     Route: 065
  3. PULMOZYME [Suspect]
     Active Substance: DORNASE ALFA
     Indication: Cystic fibrosis
     Dosage: 2.5 ML, QD (INHALANT, PRESSURIZED)
     Route: 065
  4. PULMOZYME [Suspect]
     Active Substance: DORNASE ALFA
     Dosage: UNK, INHALANT, PRESSURISED
     Route: 065
  5. PULMOZYME [Suspect]
     Active Substance: DORNASE ALFA
     Dosage: 2.5 MILLILITER, QD
     Route: 065

REACTIONS (3)
  - Death [Fatal]
  - Nasopharyngitis [Unknown]
  - Chest discomfort [Unknown]
